FAERS Safety Report 25544675 (Version 2)
Quarter: 2025Q3

REPORT INFORMATION
  Report Type: Spontaneous
  Country: US (occurrence: US)
  Receive Date: 20250711
  Receipt Date: 20250722
  Transmission Date: 20251020
  Serious: No
  Sender: SANOFI AVENTIS
  Company Number: US-SA-2025SA195476

PATIENT
  Age: 64 Year
  Sex: Male
  Weight: 98.64 kg

DRUGS (1)
  1. KEVZARA [Suspect]
     Active Substance: SARILUMAB
     Indication: Rheumatoid arthritis
     Dosage: 200 MG, QOW
     Route: 058
     Dates: start: 20250107

REACTIONS (7)
  - Pruritus [Recovering/Resolving]
  - Eye irritation [Not Recovered/Not Resolved]
  - Ocular hyperaemia [Not Recovered/Not Resolved]
  - Eye pruritus [Recovering/Resolving]
  - Skin irritation [Not Recovered/Not Resolved]
  - Hypersensitivity [Unknown]
  - Scratch [Unknown]

NARRATIVE: CASE EVENT DATE: 20250101
